FAERS Safety Report 8238703-3 (Version None)
Quarter: 2012Q1

REPORT INFORMATION
  Report Type: 
  Country: None (occurrence: None)
  Receive Date: 20120327
  Receipt Date: 20120320
  Transmission Date: 20120608
  Serious: Yes (Disabling)
  Sender: FDA-Public Use
  Company Number: US-PFIZER INC-2012039023

PATIENT
  Sex: Male
  Weight: 177 kg

DRUGS (5)
  1. LASIX [Concomitant]
     Dosage: 40 MG, 1X/DAY
  2. SIMVASTATIN [Concomitant]
     Dosage: 10 MG, 1X/DAY
  3. GEMFIBROZIL [Concomitant]
     Dosage: 600 MG, 2X/DAY
  4. DILANTIN [Suspect]
     Indication: CONVULSION
     Dosage: 300 MG (100MG THREE CAPSULES), 1X/DAY
     Route: 048
     Dates: start: 19810101
  5. DILANTIN [Suspect]
     Dosage: UNK
     Route: 048

REACTIONS (2)
  - LYMPHOEDEMA [None]
  - ARTHRITIS [None]
